FAERS Safety Report 5734256-X (Version None)
Quarter: 2008Q2

REPORT INFORMATION
  Report Type: 
  Country: None (occurrence: None)
  Receive Date: 20080512
  Receipt Date: 20080506
  Transmission Date: 20081010
  Serious: Yes (Hospitalization)
  Sender: FDA-Public Use
  Company Number: FR-JNJFOC-20080501080

PATIENT
  Sex: Female

DRUGS (8)
  1. HALDOL [Suspect]
     Indication: ABNORMAL BEHAVIOUR
     Route: 048
  2. TERALITHE [Suspect]
     Indication: BIPOLAR I DISORDER
     Route: 048
  3. MODOPAR [Suspect]
     Indication: PARKINSON'S DISEASE
     Dosage: 62.5 MG AT 8:00AM, 250MG AT 11:00AM, 125 MG AT 02:00PM, 187.5MG AT 05:00PM, 125 MG AT 08:00PM
     Route: 048
  4. STALEVO 100 [Suspect]
     Indication: PARKINSON'S DISEASE
     Route: 048
  5. LEVOTHYROXINE SODIUM [Concomitant]
  6. PAROXETINE HCL [Concomitant]
  7. GARDENAL [Concomitant]
  8. FRAXIPARINE [Concomitant]
     Route: 058

REACTIONS (4)
  - ANTIPSYCHOTIC DRUG LEVEL INCREASED [None]
  - CONFUSIONAL STATE [None]
  - DEHYDRATION [None]
  - NEPHROGENIC DIABETES INSIPIDUS [None]
